FAERS Safety Report 11622731 (Version 1)
Quarter: 2015Q4

REPORT INFORMATION
  Report Type: Spontaneous
  Country: US (occurrence: None)
  Receive Date: 20151009
  Receipt Date: 20151009
  Transmission Date: 20160304
  Serious: No
  Sender: FDA-Public Use
  Company Number: None

PATIENT
  Age: 75 Year
  Sex: Male

DRUGS (2)
  1. BRENTUXIMAB [Suspect]
     Active Substance: BRENTUXIMAB VEDOTIN
     Dates: start: 20131223, end: 20140226
  2. PRAVASTATIN [Concomitant]
     Active Substance: PRAVASTATIN\PRAVASTATIN SODIUM

REACTIONS (7)
  - Hepatic fibrosis [None]
  - Asthenia [None]
  - Neoplasm recurrence [None]
  - Skin oedema [None]
  - Cholestasis [None]
  - Drug-induced liver injury [None]
  - Biliary dilatation [None]

NARRATIVE: CASE EVENT DATE: 20140115
